FAERS Safety Report 14803102 (Version 1)
Quarter: 2018Q2

REPORT INFORMATION
  Report Type: Spontaneous
  Country: US (occurrence: US)
  Receive Date: 20180424
  Receipt Date: 20180424
  Transmission Date: 20180711
  Serious: No
  Sender: FDA-Public Use
  Company Number: US-PURDUE-USA-2018-0143289

PATIENT
  Sex: Male

DRUGS (3)
  1. OXYCODONE HYDROCHLORIDE. [Suspect]
     Active Substance: OXYCODONE HYDROCHLORIDE
     Indication: NERVE INJURY
     Dosage: 10 MG, Q4- 6H PRN
     Route: 048
  2. OXYCODONE HYDROCHLORIDE. [Suspect]
     Active Substance: OXYCODONE HYDROCHLORIDE
     Indication: NECK PAIN
     Dosage: 5 MG, Q4- 6H PRN
     Route: 048
  3. OXYCODONE HYDROCHLORIDE. [Suspect]
     Active Substance: OXYCODONE HYDROCHLORIDE
     Indication: ARTHRITIS
     Dosage: 15 MG, Q4- 6H PRN
     Route: 048
     Dates: end: 201711

REACTIONS (1)
  - Inadequate analgesia [Recovered/Resolved]
